FAERS Safety Report 7110391-9 (Version None)
Quarter: 2010Q4

REPORT INFORMATION
  Report Type: 
  Country: None (occurrence: None)
  Receive Date: 20101118
  Receipt Date: 20101104
  Transmission Date: 20110411
  Serious: Yes (Other)
  Sender: FDA-Public Use
  Company Number: PHFR2010IE03096

PATIENT
  Sex: Female

DRUGS (8)
  1. CLOZARIL [Suspect]
     Indication: SCHIZOPHRENIA
     Dosage: 275 MG MANE + 300 MG NOCTE
     Route: 048
     Dates: start: 19980623
  2. SOLIAN [Concomitant]
     Dosage: 150 MG, BID
     Route: 048
  3. PLAVIX [Concomitant]
     Dosage: 75 MG, QD
     Route: 048
  4. ASPIRIN [Concomitant]
     Dosage: 75 MG, QD
     Route: 048
  5. NEXIUM [Concomitant]
     Dosage: 40 MG, QD
     Route: 048
  6. LIPITOR [Concomitant]
     Dosage: 20 MG, QD
     Route: 048
  7. TRENTAL [Concomitant]
     Dosage: 400 MG, BID
     Route: 048
  8. SALBUTAMOL [Concomitant]
     Dosage: 2 DF, BID

REACTIONS (5)
  - ANGIOPLASTY [None]
  - ARTERIAL STENT INSERTION [None]
  - CARDIAC DISORDER [None]
  - LOWER RESPIRATORY TRACT INFECTION [None]
  - PERIPHERAL VASCULAR DISORDER [None]
